FAERS Safety Report 5163769-7 (Version None)
Quarter: 2006Q4

REPORT INFORMATION
  Report Type: 
  Country: None (occurrence: None)
  Receive Date: 20061127
  Receipt Date: 20061127
  Transmission Date: 20070319
  Serious: Yes (Other)
  Sender: FDA-Public Use
  Company Number: None

PATIENT
  Sex: Male
  Weight: 71.6683 kg

DRUGS (1)
  1. LEVAQUIN [Suspect]
     Indication: ANTI-INFECTIVE THERAPY
     Dosage: 750 MG ONCE PO
     Route: 048
     Dates: start: 20061120, end: 20061120

REACTIONS (5)
  - DIZZINESS [None]
  - HYPERAESTHESIA [None]
  - HYPOAESTHESIA [None]
  - INSOMNIA [None]
  - PARAESTHESIA [None]
